FAERS Safety Report 10455037 (Version 2)
Quarter: 2014Q4

REPORT INFORMATION
  Report Type: Spontaneous
  Country: IT (occurrence: IT)
  Receive Date: 20140915
  Receipt Date: 20141217
  Transmission Date: 20150528
  Serious: Yes (Hospitalization)
  Sender: FDA-Public Use
  Company Number: IT-ROCHE-1462178

PATIENT
  Sex: Male

DRUGS (10)
  1. X-PREP [Concomitant]
  2. AVODART [Concomitant]
     Active Substance: DUTASTERIDE
  3. TAREG [Concomitant]
     Active Substance: VALSARTAN
  4. RABEPRAZOLE [Concomitant]
     Active Substance: RABEPRAZOLE
  5. MADOPAR [Concomitant]
     Active Substance: BENSERAZIDE HYDROCHLORIDE\LEVODOPA
  6. ROCEFIN [Suspect]
     Active Substance: CEFTRIAXONE SODIUM
     Indication: PRODUCT USED FOR UNKNOWN INDICATION
     Route: 042
     Dates: start: 20140701, end: 20140909
  7. ATENOLOL. [Concomitant]
     Active Substance: ATENOLOL
  8. SEROQUEL [Concomitant]
     Active Substance: QUETIAPINE FUMARATE
  9. LACTULOSE. [Concomitant]
     Active Substance: LACTULOSE
     Route: 065
  10. FUROSEMIDE. [Concomitant]
     Active Substance: FUROSEMIDE

REACTIONS (1)
  - Acute kidney injury [Recovering/Resolving]
